FAERS Safety Report 26021595 (Version 2)
Quarter: 2025Q4

REPORT INFORMATION
  Report Type: Spontaneous
  Country: US (occurrence: US)
  Receive Date: 20251110
  Receipt Date: 20251117
  Transmission Date: 20260118
  Serious: Yes (Other)
  Sender: AMGEN
  Company Number: US-AMGEN-USASP2025218265

PATIENT
  Sex: Female
  Weight: 61.678 kg

DRUGS (2)
  1. XGEVA [Suspect]
     Active Substance: DENOSUMAB
     Indication: Neoplasm malignant
     Dosage: UNK, QMO
     Route: 065
     Dates: start: 20230123, end: 20241205
  2. IBRANCE [Concomitant]
     Active Substance: PALBOCICLIB
     Indication: Neoplasm malignant
     Dosage: 75 MILLIGRAM
     Route: 048

REACTIONS (3)
  - Jaw fracture [Unknown]
  - Exposed bone in jaw [Unknown]
  - Bone loss [Unknown]

NARRATIVE: CASE EVENT DATE: 20250101
